FAERS Safety Report 16184662 (Version 1)
Quarter: 2019Q2

REPORT INFORMATION
  Report Type: Spontaneous
  Country: US (occurrence: US)
  Receive Date: 20190411
  Receipt Date: 20190411
  Transmission Date: 20190711
  Serious: No
  Sender: FDA-Public Use
  Company Number: US-PFIZER INC-2019149783

PATIENT
  Age: 59 Year
  Sex: Male

DRUGS (1)
  1. XELJANZ XR [Suspect]
     Active Substance: TOFACITINIB CITRATE
     Dosage: 11 MG, UNK
     Dates: start: 20190323

REACTIONS (6)
  - Fatigue [Unknown]
  - Insomnia [Unknown]
  - Hyperphagia [Unknown]
  - Inflammation [Unknown]
  - Pain [Unknown]
  - Pollakiuria [Unknown]
